FAERS Safety Report 23519182 (Version 2)
Quarter: 2024Q1

REPORT INFORMATION
  Report Type: Report from Study
  Country: US (occurrence: US)
  Receive Date: 20240213
  Receipt Date: 20240222
  Transmission Date: 20240409
  Serious: Yes (Other)
  Sender: FDA-Public Use
  Company Number: US-MYLANLABS-2024M1013617

PATIENT
  Sex: Male

DRUGS (4)
  1. PHENYTOIN [Suspect]
     Active Substance: PHENYTOIN
     Indication: Product used for unknown indication
     Dosage: 400 MILLIGRAM, (OTHER DAYS)
     Route: 048
     Dates: start: 20230501
  2. PHENYTOIN [Suspect]
     Active Substance: PHENYTOIN
     Dosage: 400 MILLIGRAM, (MONDAY AND THURSDAY)
     Route: 048
     Dates: start: 20230501
  3. KEPPRA XR [Concomitant]
     Active Substance: LEVETIRACETAM
     Indication: Product used for unknown indication
     Dosage: UNK
     Route: 065
  4. LACOSAMIDE [Concomitant]
     Active Substance: LACOSAMIDE
     Indication: Product used for unknown indication
     Dosage: UNK
     Route: 065

REACTIONS (1)
  - Partial seizures [Unknown]
